APPROVED DRUG PRODUCT: PHENDIMETRAZINE TARTRATE
Active Ingredient: PHENDIMETRAZINE TARTRATE
Strength: 105MG
Dosage Form/Route: CAPSULE, EXTENDED RELEASE;ORAL
Application: N018074 | Product #001
Applicant: ACERTIS PHARMACEUTICALS LLC
Approved: Approved Prior to Jan 1, 1982 | RLD: Yes | RS: Yes | Type: RX